FAERS Safety Report 17921932 (Version 1)
Quarter: 2020Q2

REPORT INFORMATION
  Report Type: Spontaneous
  Country: US (occurrence: US)
  Receive Date: 20200619
  Receipt Date: 20200619
  Transmission Date: 20200714
  Serious: Yes (Hospitalization)
  Sender: FDA-Public Use
  Company Number: None

PATIENT
  Sex: Female

DRUGS (17)
  1. ACETAMIN [Concomitant]
     Active Substance: ACETAMINOPHEN
  2. SENOKOT [Concomitant]
     Active Substance: SENNOSIDES
  3. TYLENOL [Concomitant]
     Active Substance: ACETAMINOPHEN
  4. DALFAMPRIDINE. [Suspect]
     Active Substance: DALFAMPRIDINE
     Indication: MULTIPLE SCLEROSIS
     Dosage: ?          OTHER FREQUENCY:Q12H;?
     Route: 048
     Dates: start: 20181116
  5. ATORVASTATIN [Concomitant]
     Active Substance: ATORVASTATIN
  6. BACLOFEN. [Concomitant]
     Active Substance: BACLOFEN
  7. ESCITALOPRAM [Concomitant]
     Active Substance: ESCITALOPRAM OXALATE
  8. PREDNISONE. [Concomitant]
     Active Substance: PREDNISONE
  9. XARELTO [Concomitant]
     Active Substance: RIVAROXABAN
  10. BETHANECHOL [Concomitant]
     Active Substance: BETHANECHOL
  11. FEROSUL [Concomitant]
     Active Substance: FERROUS SULFATE
  12. METFORMIN [Concomitant]
     Active Substance: METFORMIN HYDROCHLORIDE
  13. STOOL SOFTNR [Concomitant]
  14. FREESTYLE [Concomitant]
  15. NORTRIPTYLIN [Concomitant]
     Active Substance: NORTRIPTYLINE
  16. SENNA [Concomitant]
     Active Substance: SENNA LEAF\SENNOSIDES\SENNOSIDES A AND B
  17. VITAMIN D [Concomitant]
     Active Substance: VITAMIN D NOS

REACTIONS (2)
  - Dysstasia [None]
  - Multiple sclerosis [None]
